FAERS Safety Report 6084285-4 (Version None)
Quarter: 2009Q1

REPORT INFORMATION
  Report Type: 
  Country: None (occurrence: None)
  Receive Date: 20090219
  Receipt Date: 20090206
  Transmission Date: 20090719
  Serious: Yes (Hospitalization)
  Sender: FDA-Public Use
  Company Number: US-PFIZER INC-2008076731

PATIENT
  Sex: Male
  Weight: 84.7 kg

DRUGS (16)
  1. SUNITINIB MALATE [Suspect]
     Indication: RENAL CELL CARCINOMA
     Dosage: 37.5 MG DAILY
     Route: 048
     Dates: start: 20080226, end: 20080901
  2. GEMCITABINE [Suspect]
     Indication: RENAL CELL CARCINOMA
     Dates: start: 20080226, end: 20080826
  3. NORVASC [Concomitant]
     Dosage: 10 MG
  4. ACETYLSALICYLIC ACID [Concomitant]
     Dosage: 81 MG
     Route: 048
  5. CENTRUM SILVER [Concomitant]
  6. FISH OIL [Concomitant]
     Route: 048
  7. NEURONTIN [Concomitant]
     Dosage: 1800 MG
  8. HYDROCHLOROTHIAZIDE [Concomitant]
     Dosage: 12.5 MG DAILY
  9. LISINOPRIL [Concomitant]
     Dosage: 40 MG
  10. PSYLLIUM HYDROPHILIC MUCILLOID [Concomitant]
  11. RITALIN [Concomitant]
     Dosage: 5 MG, TID
     Route: 048
  12. METOPROLOL TARTRATE [Concomitant]
     Dosage: 100 MG, 1X/DAY
  13. ZOLOFT [Concomitant]
  14. PERCOCET [Concomitant]
     Dosage: 10/325
     Route: 048
  15. COMPAZINE [Concomitant]
     Dosage: 10 MG
  16. AMBIEN [Concomitant]
     Dosage: 10 MG, AT BEDTIME

REACTIONS (7)
  - ANAEMIA [None]
  - ASTHENIA [None]
  - BACK PAIN [None]
  - CONFUSIONAL STATE [None]
  - DIARRHOEA [None]
  - FATIGUE [None]
  - THROMBOCYTOPENIA [None]
